FAERS Safety Report 14882778 (Version 1)
Quarter: 2018Q2

REPORT INFORMATION
  Report Type: Spontaneous
  Country: US (occurrence: US)
  Receive Date: 20180511
  Receipt Date: 20180511
  Transmission Date: 20180711
  Serious: No
  Sender: FDA-Public Use
  Company Number: US-ALLERGAN-1804863US

PATIENT
  Sex: Female

DRUGS (1)
  1. RHOFADE [Suspect]
     Active Substance: OXYMETAZOLINE HYDROCHLORIDE
     Indication: ROSACEA
     Dosage: PEA SIZE AMOUNT X1
     Route: 061
     Dates: start: 201710, end: 201710

REACTIONS (3)
  - Application site erythema [Recovered/Resolved]
  - Off label use [Unknown]
  - Application site pain [Recovered/Resolved]
